FAERS Safety Report 11604206 (Version 1)
Quarter: 2015Q4

REPORT INFORMATION
  Report Type: Spontaneous
  Country: US (occurrence: None)
  Receive Date: 20151006
  Receipt Date: 20151006
  Transmission Date: 20160304
  Serious: Yes (Other)
  Sender: FDA-Public Use
  Company Number: None

PATIENT
  Age: 14 Year
  Sex: Male
  Weight: 53.07 kg

DRUGS (3)
  1. LAMICTAL XR [Suspect]
     Active Substance: LAMOTRIGINE
     Indication: PETIT MAL EPILEPSY
     Dosage: 1 PILL
     Route: 048
     Dates: start: 20150915, end: 20150926
  2. IBUPROFEN PRN [Concomitant]
  3. INTUNIV [Concomitant]
     Active Substance: GUANFACINE HYDROCHLORIDE

REACTIONS (4)
  - Rash [None]
  - Neck pain [None]
  - Headache [None]
  - Hyperpyrexia [None]

NARRATIVE: CASE EVENT DATE: 20150925
